FAERS Safety Report 7531035-8 (Version None)
Quarter: 2011Q2

REPORT INFORMATION
  Report Type: 
  Country: None (occurrence: None)
  Receive Date: 20110608
  Receipt Date: 20110128
  Transmission Date: 20111010
  Serious: Yes (Hospitalization, Other)
  Sender: FDA-Public Use
  Company Number: US-BAYER-201040671NA

PATIENT
  Age: 29 Year
  Sex: Female
  Weight: 50.794 kg

DRUGS (12)
  1. NAPROXEN (ALEVE) [Concomitant]
     Dosage: UNK
     Dates: start: 20050323, end: 20050323
  2. NAPROXEN (ALEVE) [Concomitant]
     Dosage: 220 MG, UNK
     Dates: start: 20040916, end: 20040916
  3. DIFLUCAN [Concomitant]
     Dosage: 150 MG, UNK
     Route: 048
     Dates: start: 20040901
  4. ORAL CONTRACEPTIVE NOS [Concomitant]
     Indication: CONTRACEPTION
     Dosage: UNK
     Dates: start: 20040901
  5. ACYCLOVIR [Concomitant]
     Indication: HERPES VIRUS INFECTION
  6. NAPROXEN [Concomitant]
     Dosage: UNK
     Dates: start: 20050201
  7. FLAGYL [Concomitant]
     Dosage: 250 MG, TID
  8. ZITHROMAX [Concomitant]
     Dosage: 250 MG, UNK
  9. AUGMENTIN '125' [Concomitant]
     Dosage: 500 MG, UNK
  10. MOTRIN [Concomitant]
     Dosage: UNK
     Dates: start: 20020101, end: 20050101
  11. ADVIL LIQUI-GELS [Concomitant]
     Dosage: UNK
     Dates: start: 20020101, end: 20050101
  12. YASMIN [Suspect]
     Indication: ACNE
     Dosage: UNK
     Route: 048
     Dates: start: 20040101, end: 20050101

REACTIONS (5)
  - THYROID DISORDER [None]
  - DEEP VEIN THROMBOSIS [None]
  - BLOOD PRESSURE ABNORMAL [None]
  - MENTAL DISORDER [None]
  - DYSSTASIA [None]
